FAERS Safety Report 16806702 (Version 2)
Quarter: 2019Q3

REPORT INFORMATION
  Report Type: Spontaneous
  Country: US (occurrence: US)
  Receive Date: 20190913
  Receipt Date: 20190918
  Transmission Date: 20191005
  Serious: No
  Sender: FDA-Public Use
  Company Number: US-PFIZER INC-2019394793

PATIENT
  Age: 48 Year
  Sex: Female
  Weight: 58.6 kg

DRUGS (4)
  1. PREMARIN [Suspect]
     Active Substance: ESTROGENS, CONJUGATED
     Dosage: 1.25 MG, 2X/DAY
     Route: 048
     Dates: start: 20190910
  2. PREMARIN [Suspect]
     Active Substance: ESTROGENS, CONJUGATED
     Indication: OESTROGEN DEFICIENCY
     Dosage: 1.25 MG, DAILY
     Route: 048
  3. SYNTHROID [Concomitant]
     Active Substance: LEVOTHYROXINE SODIUM
     Dosage: 0.1 MG, 1X/DAY
  4. ARMOUR THYROID [Concomitant]
     Active Substance: THYROID, PORCINE
     Dosage: 60 MG, 1X/DAY
     Dates: start: 20190910

REACTIONS (5)
  - Drug ineffective [Unknown]
  - Mood swings [Unknown]
  - Tri-iodothyronine free decreased [Unknown]
  - Headache [Unknown]
  - Blood oestrogen decreased [Unknown]

NARRATIVE: CASE EVENT DATE: 201909
